FAERS Safety Report 7236101-2 (Version None)
Quarter: 2011Q1

REPORT INFORMATION
  Report Type: 
  Country: None (occurrence: None)
  Receive Date: 20110120
  Receipt Date: 20101130
  Transmission Date: 20110831
  Serious: Yes (Hospitalization, Other)
  Sender: FDA-Public Use
  Company Number: US-BAYER-201022568NA

PATIENT
  Sex: Female
  Weight: 144.22 kg

DRUGS (7)
  1. YASMIN [Suspect]
     Indication: UNEVALUABLE EVENT
     Dosage: UNK
     Dates: start: 20001001, end: 20060901
  2. ANTIBIOTICS [Concomitant]
     Dosage: UNK UNK, PRN
  3. UNCODEABLE ^UNCLASSIFIABLE^ [Concomitant]
     Indication: MIGRAINE
     Dosage: UNK UNK, PRN
  4. NEXIUM [Concomitant]
     Dosage: 40 MG, UNK
     Dates: start: 20060101, end: 20090101
  5. NSAID'S [Concomitant]
     Dosage: UNK UNK, PRN
  6. GLUCOPHAGE [Concomitant]
     Indication: POLYCYSTIC OVARIES
     Dosage: 1000 MG, UNK
     Dates: start: 20000101
  7. EFFEXOR [Concomitant]
     Indication: ANXIETY
     Dosage: UNK
     Dates: start: 20060101

REACTIONS (3)
  - GALLBLADDER DISORDER [None]
  - ANGINA PECTORIS [None]
  - PALPITATIONS [None]
